FAERS Safety Report 21205545 (Version 2)
Quarter: 2022Q4

REPORT INFORMATION
  Report Type: Spontaneous
  Country: US (occurrence: US)
  Receive Date: 20220812
  Receipt Date: 20221021
  Transmission Date: 20230113
  Serious: Yes (Other)
  Sender: FDA-Public Use
  Company Number: US-BRISTOL-MYERS SQUIBB COMPANY-2022-087929

PATIENT
  Age: 72 Year
  Sex: Male
  Weight: 76.2 kg

DRUGS (3)
  1. POMALYST [Suspect]
     Active Substance: POMALIDOMIDE
     Indication: Plasma cell myeloma
     Dosage: DOSE : 4 MG;     FREQ : DAILY FOR 21 DAYS,
     Route: 048
     Dates: start: 2014
  2. POMALYST [Suspect]
     Active Substance: POMALIDOMIDE
     Dosage: DOSE : 4 MG;     FREQ : DAILY FOR 21 DAYS,
     Route: 048
     Dates: start: 2014, end: 20220915
  3. CLONAZEPAM [Concomitant]
     Active Substance: CLONAZEPAM

REACTIONS (13)
  - Gastric ulcer [Unknown]
  - Fatigue [Unknown]
  - Constipation [Unknown]
  - Mood altered [Unknown]
  - Hostility [Unknown]
  - Dysuria [Unknown]
  - Illness [Unknown]
  - Pruritus [Unknown]
  - Depression [Unknown]
  - Insomnia [Unknown]
  - Abdominal discomfort [Unknown]
  - Chromaturia [Unknown]
  - Urine flow decreased [Unknown]

NARRATIVE: CASE EVENT DATE: 20220101
